FAERS Safety Report 20115087 (Version 4)
Quarter: 2022Q2

REPORT INFORMATION
  Report Type: Spontaneous
  Country: CA (occurrence: CA)
  Receive Date: 20211125
  Receipt Date: 20220414
  Transmission Date: 20220720
  Serious: Yes (Other)
  Sender: FDA-Public Use
  Company Number: CA-CELLTRION INC.-2021CA015954

PATIENT

DRUGS (4)
  1. INFLECTRA [Suspect]
     Active Substance: INFLIXIMAB-DYYB
     Indication: Crohn^s disease
     Dosage: 5 MG/KG, 0, 2, 6 THEN EVERY 8 WEEKS
     Route: 042
     Dates: start: 20211021
  2. INFLECTRA [Suspect]
     Active Substance: INFLIXIMAB-DYYB
     Dosage: 5 MG/KG, 0, 2, 6 THEN EVERY 8 WEEKS
     Route: 042
     Dates: start: 20211115
  3. INFLECTRA [Suspect]
     Active Substance: INFLIXIMAB-DYYB
     Dosage: 5 MG/KG, 0, 2, 6 THEN EVERY 8 WEEKS
     Route: 042
     Dates: start: 20211214
  4. INFLECTRA [Suspect]
     Active Substance: INFLIXIMAB-DYYB
     Dosage: 5 MG/KG, 0, 2, 6 THEN EVERY 8 WEEKS
     Route: 042
     Dates: start: 20220209

REACTIONS (3)
  - Weight increased [Unknown]
  - Condition aggravated [Recovering/Resolving]
  - Inappropriate schedule of product administration [Unknown]

NARRATIVE: CASE EVENT DATE: 20211115
